FAERS Safety Report 5823485-2 (Version None)
Quarter: 2008Q3

REPORT INFORMATION
  Report Type: 
  Country: None (occurrence: None)
  Receive Date: 20080725
  Receipt Date: 20080716
  Transmission Date: 20090109
  Serious: Yes (Other)
  Sender: FDA-Public Use
  Company Number: CN-ELI_LILLY_AND_COMPANY-CN200807003316

PATIENT
  Age: 3 Year
  Sex: Female
  Weight: 17 kg

DRUGS (1)
  1. CECLOR [Suspect]
     Indication: NASOPHARYNGITIS
     Dosage: 125 MG, 3/D
     Route: 048
     Dates: start: 20080715, end: 20080715

REACTIONS (2)
  - CHEST DISCOMFORT [None]
  - TACHYCARDIA [None]
